FAERS Safety Report 9997634 (Version 1)
Quarter: 2014Q1

REPORT INFORMATION
  Report Type: Spontaneous
  Country: US (occurrence: None)
  Receive Date: 20140225
  Receipt Date: 20140225
  Transmission Date: 20141002
  Serious: Yes (Other)
  Sender: FDA-Public Use
  Company Number: 2013-172

PATIENT
  Age: 61 Year
  Sex: Female
  Weight: 75.3 kg

DRUGS (15)
  1. PRIALT (ZICONOTIDE) INTRATHECAL INFUSION [Suspect]
     Indication: PAIN
     Dosage: ONCE/HOUR
     Route: 037
     Dates: start: 2012
  2. PRIALT (ZICONOTIDE) INTRATHECAL INFUSION [Suspect]
     Indication: BACK PAIN
     Dosage: ONCE/HOUR
     Route: 037
     Dates: start: 2012
  3. PRIALT (ZICONOTIDE) INTRATHECAL INFUSION [Suspect]
     Indication: INTERVERTEBRAL DISC DEGENERATION
     Dosage: ONCE/HOUR
     Route: 037
     Dates: start: 2012
  4. BACLOFEN (BACLOFEN) INJECTION [Suspect]
     Indication: PAIN
     Dosage: ONCE/ HOUR
     Route: 037
  5. BACLOFEN (BACLOFEN) INJECTION [Suspect]
     Indication: BACK PAIN
     Dosage: ONCE/ HOUR
     Route: 037
  6. BACLOFEN (BACLOFEN) INJECTION [Suspect]
     Indication: INTERVERTEBRAL DISC DEGENERATION
     Dosage: ONCE/ HOUR
     Route: 037
  7. CLONIDINE (CLONIDINE) INJECTION [Suspect]
     Indication: PAIN
     Dosage: ONCE/ HOUR
     Route: 037
  8. CLONIDINE (CLONIDINE) INJECTION [Suspect]
     Indication: BACK PAIN
     Dosage: ONCE/ HOUR
     Route: 037
  9. CLONIDINE (CLONIDINE) INJECTION [Suspect]
     Indication: INTERVERTEBRAL DISC DEGENERATION
     Dosage: ONCE/ HOUR
     Route: 037
  10. BUPIVACAINE HYDROCHLORIDE [Suspect]
     Indication: PAIN
  11. BUPIVACAINE HYDROCHLORIDE [Suspect]
     Indication: BACK PAIN
  12. BUPIVACAINE HYDROCHLORIDE [Suspect]
     Indication: INTERVERTEBRAL DISC DEGENERATION
  13. LASIX (FUROSEMIDE) [Concomitant]
  14. POTASSIUM CHLORIDE (POTASSIUM CHLORIDE) [Concomitant]
  15. VICODIN (HYDROCODONE BITARTRATE, PARACETAMOL) [Concomitant]

REACTIONS (4)
  - Urinary retention [None]
  - Immobile [None]
  - Local swelling [None]
  - Pain in extremity [None]
